FAERS Safety Report 6666181-4 (Version None)
Quarter: 2010Q2

REPORT INFORMATION
  Report Type: 
  Country: None (occurrence: None)
  Receive Date: 20100402
  Receipt Date: 20100323
  Transmission Date: 20101027
  Serious: Yes (Hospitalization)
  Sender: FDA-Public Use
  Company Number: US-JNJFOC-20100101601

PATIENT
  Sex: Male
  Weight: 73.6 kg

DRUGS (11)
  1. BLINDED; USTEKINUMA [Suspect]
     Route: 058
  2. BLINDED; USTEKINUMA [Suspect]
     Indication: CROHN'S DISEASE
     Route: 058
  3. PLACEBO [Suspect]
     Indication: CROHN'S DISEASE
     Route: 058
  4. USTEKINUMAB-BLINDED [Suspect]
     Route: 042
  5. USTEKINUMAB-BLINDED [Suspect]
     Indication: CROHN'S DISEASE
     Route: 042
  6. PLACEBO [Suspect]
     Route: 042
  7. IMURAN [Concomitant]
     Indication: CROHN'S DISEASE
     Route: 048
  8. FENTANYL [Concomitant]
     Indication: CROHN'S DISEASE
     Route: 062
  9. HUMIRA [Concomitant]
     Indication: CROHN'S DISEASE
     Route: 058
  10. ENTOCORT EC [Concomitant]
     Indication: CROHN'S DISEASE
     Route: 048
  11. CIPROFLOXACIN [Concomitant]
     Indication: CROHN'S DISEASE
     Route: 048

REACTIONS (1)
  - ABSCESS INTESTINAL [None]
